FAERS Safety Report 5155368-8 (Version None)
Quarter: 2006Q4

REPORT INFORMATION
  Report Type: 
  Country: None (occurrence: None)
  Receive Date: 20061114
  Receipt Date: 20061103
  Transmission Date: 20070319
  Serious: Yes (Hospitalization, Other)
  Sender: FDA-Public Use
  Company Number: 2006SP005676

PATIENT
  Age: 68 Year
  Sex: Female

DRUGS (2)
  1. PROVENTIL-HFA [Suspect]
     Indication: ASTHMA
     Dosage: 0 DF; PO
     Route: 048
  2. LASIX [Suspect]
     Indication: OEDEMA PERIPHERAL
     Dosage: 40 MG;QD;PO
     Route: 048

REACTIONS (11)
  - DYSPNOEA [None]
  - EXTRASYSTOLES [None]
  - HYPERHIDROSIS [None]
  - OEDEMA PERIPHERAL [None]
  - OVERDOSE [None]
  - PALLOR [None]
  - RESPIRATORY DISTRESS [None]
  - RESPIRATORY RATE INCREASED [None]
  - TACHYCARDIA [None]
  - VENTRICULAR TACHYCARDIA [None]
  - WHEEZING [None]
